FAERS Safety Report 5243419-1 (Version None)
Quarter: 2007Q1

REPORT INFORMATION
  Report Type: 
  Country: None (occurrence: None)
  Receive Date: 20070214
  Receipt Date: 20070201
  Transmission Date: 20070707
  Serious: Yes (Hospitalization)
  Sender: FDA-Public Use
  Company Number: 02100-JPN-05-0611

PATIENT
  Age: 74 Year
  Sex: Male

DRUGS (6)
  1. CILOSTAZOL [Suspect]
     Indication: LACUNAR INFARCTION
     Dosage: 200 MG ORAL
     Route: 048
     Dates: start: 20040107, end: 20051109
  2. CILOSTAZOL [Suspect]
     Indication: LACUNAR INFARCTION
     Dosage: 200 MG ORAL
     Route: 048
     Dates: start: 20051215, end: 20061205
  3. LISINOPRIL [Concomitant]
  4. MOSAPRIDE CITRATE [Concomitant]
  5. NIFEDIPINE [Concomitant]
  6. ALLOPURINOL SODIUM [Concomitant]

REACTIONS (3)
  - GASTRIC ULCER HAEMORRHAGE [None]
  - LABORATORY TEST ABNORMAL [None]
  - STRESS ULCER [None]
